FAERS Safety Report 9904668 (Version 3)
Quarter: 2014Q3

REPORT INFORMATION
  Report Type: Spontaneous
  Country: JP (occurrence: JP)
  Receive Date: 20140218
  Receipt Date: 20140717
  Transmission Date: 20150326
  Serious: Yes (Other)
  Sender: FDA-Public Use
  Company Number: JP-PFIZER INC-2014043449

PATIENT
  Age: 3 Decade
  Sex: Female

DRUGS (2)
  1. ESTARON MOCHA [Suspect]
     Active Substance: CAFFEINE\THIAMINE MONONITRATE
     Indication: COMPLETED SUICIDE
     Dosage: UNK
     Route: 048
  2. HALCION [Suspect]
     Active Substance: TRIAZOLAM
     Indication: COMPLETED SUICIDE
     Dosage: UNK
     Route: 048

REACTIONS (3)
  - Intentional overdose [Recovered/Resolved]
  - Suicide attempt [Recovered/Resolved]
  - Loss of consciousness [Recovered/Resolved]
